FAERS Safety Report 16779130 (Version 1)
Quarter: 2019Q3

REPORT INFORMATION
  Report Type: Spontaneous
  Country: US (occurrence: US)
  Receive Date: 20190906
  Receipt Date: 20190906
  Transmission Date: 20191005
  Serious: No
  Sender: FDA-Public Use
  Company Number: US-TEVA-2019-US-1103000

PATIENT
  Age: 10 Year
  Sex: Male

DRUGS (2)
  1. CLONIDINE ER [Suspect]
     Active Substance: CLONIDINE
     Indication: ATTENTION DEFICIT/HYPERACTIVITY DISORDER
     Route: 065
     Dates: start: 20190828
  2. CLONIDINE ER [Suspect]
     Active Substance: CLONIDINE
     Indication: POST-TRAUMATIC STRESS DISORDER

REACTIONS (4)
  - Screaming [Unknown]
  - Agitation [Not Recovered/Not Resolved]
  - Abnormal behaviour [Unknown]
  - Nightmare [Unknown]

NARRATIVE: CASE EVENT DATE: 20190828
